FAERS Safety Report 4936606-0 (Version None)
Quarter: 2006Q1

REPORT INFORMATION
  Report Type: 
  Country: None (occurrence: None)
  Receive Date: 20060303
  Receipt Date: 20060221
  Transmission Date: 20060701
  Serious: Yes (Other)
  Sender: FDA-Public Use
  Company Number: 222394

PATIENT
  Sex: Male

DRUGS (4)
  1. RITUXAN [Suspect]
     Dates: start: 20051018, end: 20051129
  2. PROCRIT [Suspect]
     Indication: CHRONIC LYMPHOCYTIC LEUKAEMIA
     Dosage: 40000 UNIT, 1/WEEK, SUBCUTANEOUS
     Route: 058
     Dates: start: 20051013, end: 20051218
  3. ALLOPURINOL [Suspect]
     Dates: start: 20051019, end: 20051110
  4. CHEMOTHERAPY TREATMENTS NOS (ANTINEOPLASTIC AGENT NOS) [Concomitant]

REACTIONS (5)
  - APLASIA PURE RED CELL [None]
  - DRUG INEFFECTIVE [None]
  - HYPOPLASTIC ANAEMIA [None]
  - THERAPEUTIC RESPONSE DECREASED [None]
  - THYMOMA [None]
